FAERS Safety Report 20170186 (Version 1)
Quarter: 2021Q4

REPORT INFORMATION
  Report Type: Spontaneous
  Country: ES (occurrence: ES)
  Receive Date: 20211210
  Receipt Date: 20211210
  Transmission Date: 20220303
  Serious: Yes (Other)
  Sender: FDA-Public Use
  Company Number: ES-AMERICAN REGENT INC-2021003178

PATIENT
  Age: 68 Year
  Sex: Female

DRUGS (6)
  1. FERINJECT [Suspect]
     Active Substance: FERRIC CARBOXYMALTOSE
     Indication: Anaemia
     Dosage: 1 ? 20 ML VIAL (1 GM, 1 IN 1 TOTAL)
     Route: 042
     Dates: start: 20210902, end: 20210902
  2. ABSTRAL [Concomitant]
     Active Substance: FENTANYL CITRATE
     Indication: Product used for unknown indication
     Dosage: 200 MICROGRAM
     Route: 060
     Dates: start: 202108
  3. FERROUS SULFATE [Concomitant]
     Active Substance: FERROUS SULFATE
     Indication: Product used for unknown indication
     Dosage: 80 MILLIGRAM, QD
     Route: 048
     Dates: start: 202108
  4. DEXAMETHASONE [Concomitant]
     Active Substance: DEXAMETHASONE
     Indication: Product used for unknown indication
     Dosage: 4 MILLIGRAM, QD
     Route: 048
     Dates: start: 202108
  5. ESOMEPRAZOLE [Concomitant]
     Active Substance: ESOMEPRAZOLE
     Indication: Product used for unknown indication
     Dosage: 20 MILLIGRAM, QD
     Route: 048
     Dates: start: 202108
  6. AMIODARONE HYDROCHLORIDE [Concomitant]
     Active Substance: AMIODARONE HYDROCHLORIDE
     Indication: Product used for unknown indication
     Dosage: 200 MILLIGRAM, QD
     Route: 048
     Dates: start: 202107

REACTIONS (1)
  - Oedema peripheral [Recovered/Resolved]

NARRATIVE: CASE EVENT DATE: 20210903
